FAERS Safety Report 8934323 (Version 1)
Quarter: 2012Q4

REPORT INFORMATION
  Report Type: Report from Study
  Country: US (occurrence: US)
  Receive Date: 20121129
  Receipt Date: 20121129
  Transmission Date: 20130627
  Serious: Yes (Hospitalization)
  Sender: FDA-Public Use
  Company Number: US-009507513-1211USA010206

PATIENT
  Age: 57 Year
  Sex: Male
  Weight: 81.6 kg

DRUGS (7)
  1. TEMOZOLOMIDE [Suspect]
     Indication: GLIOBLASTOMA
     Dosage: 410 mg, qd
     Route: 048
     Dates: start: 20091217, end: 20091221
  2. BEVACIZUMAB [Suspect]
     Indication: GLIOBLASTOMA
     Dosage: 851 mg 1 in 2 weeks
     Route: 042
     Dates: start: 20091217, end: 20091231
  3. IRINOTECAN HYDROCHLORIDE [Suspect]
     Indication: GLIOBLASTOMA
     Dosage: 260 mg 1 in 2 weeks
     Route: 042
     Dates: start: 20091217, end: 20091231
  4. KEPRA [Concomitant]
     Dosage: 50 mg, bid
  5. DECADRON (DEXAMETHASONE) [Concomitant]
     Dosage: 4 mg, UNK
  6. HYZAAR [Concomitant]
     Dosage: 12.5 mg, qd
  7. AMBIEN [Concomitant]
     Dosage: 12.5 mg  QHS

REACTIONS (1)
  - Pancytopenia [Recovered/Resolved]
